FAERS Safety Report 9319233 (Version 1)
Quarter: 2013Q2

REPORT INFORMATION
  Report Type: Spontaneous
  Country: CA (occurrence: CA)
  Receive Date: 20130530
  Receipt Date: 20130530
  Transmission Date: 20140414
  Serious: Yes (Hospitalization)
  Sender: FDA-Public Use
  Company Number: CA-GLAXOSMITHKLINE-A1025075A

PATIENT
  Age: 65 Year
  Sex: Female
  Weight: 56.8 kg

DRUGS (4)
  1. NICODERM [Suspect]
     Indication: SMOKING CESSATION THERAPY
     Dosage: 21MG UNKNOWN
     Route: 062
     Dates: start: 20130512, end: 20130521
  2. ADVIL [Concomitant]
     Indication: SPINAL COLUMN STENOSIS
  3. RIVOTRIL [Concomitant]
     Indication: ANXIETY
  4. ADACEL [Concomitant]
     Indication: SPINAL COLUMN STENOSIS
     Dosage: 3000MG PER DAY
     Dates: start: 2009

REACTIONS (5)
  - Palpitations [Recovered/Resolved]
  - Tremor [Recovered/Resolved]
  - Insomnia [Recovered/Resolved]
  - Nightmare [Recovered/Resolved]
  - Nicotine dependence [Unknown]
